FAERS Safety Report 20671618 (Version 1)
Quarter: 2022Q2

REPORT INFORMATION
  Report Type: Spontaneous
  Country: CN (occurrence: CN)
  Receive Date: 20220404
  Receipt Date: 20220404
  Transmission Date: 20220720
  Serious: Yes (Hospitalization)
  Sender: FDA-Public Use
  Company Number: CN-BAXTER-2022BAX007071

PATIENT
  Age: 61 Year
  Sex: Male

DRUGS (8)
  1. CYCLOPHOSPHAMIDE [Suspect]
     Active Substance: CYCLOPHOSPHAMIDE
     Indication: Mantle cell lymphoma
     Dosage: CHOP REGIMEN, FIRST COURSE DAY 1 TO DAY 5
     Route: 041
     Dates: start: 20220211, end: 20220211
  2. CYCLOPHOSPHAMIDE [Suspect]
     Active Substance: CYCLOPHOSPHAMIDE
     Dosage: CHOP REGIMEN, SECOND COURSE DAY 1 TO DAY 5
     Route: 041
  3. PIRARUBICIN HYDROCHLORIDE [Suspect]
     Active Substance: PIRARUBICIN HYDROCHLORIDE
     Indication: Mantle cell lymphoma
     Dosage: CHOP REGIMEN, FIRST COURSE DAY 1 TO DAY 5
     Route: 041
     Dates: start: 20220211, end: 20220211
  4. PIRARUBICIN HYDROCHLORIDE [Suspect]
     Active Substance: PIRARUBICIN HYDROCHLORIDE
     Dosage: CHOP REGIMEN, SECOND COURSE DAY 1 TO DAY 5
     Route: 041
  5. VINCRISTINE SULFATE [Suspect]
     Active Substance: VINCRISTINE SULFATE
     Indication: Mantle cell lymphoma
     Dosage: CHOP REGIMEN, FIRST COURSE DAY 1 TO DAY 5
     Route: 041
     Dates: start: 20220211, end: 20220211
  6. VINCRISTINE SULFATE [Suspect]
     Active Substance: VINCRISTINE SULFATE
     Dosage: CHOP REGIMEN, SECOND COURSE DAY 1 TO DAY 5
     Route: 041
  7. PREDNISONE [Suspect]
     Active Substance: PREDNISONE
     Indication: Mantle cell lymphoma
     Dosage: CHOP REGIMEN, FIRST COURSE DAY 1 TO DAY 5
     Route: 065
  8. PREDNISONE [Suspect]
     Active Substance: PREDNISONE
     Dosage: CHOP REGIMEN, SECOND COURSE DAY 1 TO DAY 5
     Route: 065

REACTIONS (3)
  - Myocardial injury [Recovering/Resolving]
  - Anaemia [Recovering/Resolving]
  - White blood cell count decreased [Recovering/Resolving]

NARRATIVE: CASE EVENT DATE: 20220303
